FAERS Safety Report 4692394-7 (Version None)
Quarter: 2005Q2

REPORT INFORMATION
  Report Type: 
  Country: None (occurrence: None)
  Receive Date: 20050615
  Receipt Date: 20050530
  Transmission Date: 20051028
  Serious: Yes (Hospitalization)
  Sender: FDA-Public Use
  Company Number: FR_050506422

PATIENT
  Age: 39 Year
  Sex: Male
  Weight: 62 kg

DRUGS (3)
  1. GEMZAR [Suspect]
     Indication: ADENOCARCINOMA
     Dosage: 1250MG/M2/2 OTHER
     Dates: start: 20041119, end: 20051126
  2. GEMZAR [Suspect]
     Indication: BRONCHIAL CARCINOMA
     Dosage: 1250MG/M2/2 OTHER
     Dates: start: 20041119, end: 20051126
  3. CISPLATIN [Concomitant]

REACTIONS (6)
  - BLOOD UREA DECREASED [None]
  - HAEMOGLOBIN DECREASED [None]
  - LOCAL REACTION [None]
  - PLATELET COUNT INCREASED [None]
  - SKIN TEST POSITIVE [None]
  - TOXIC SKIN ERUPTION [None]
